FAERS Safety Report 10640094 (Version 1)
Quarter: 2014Q4

REPORT INFORMATION
  Report Type: Spontaneous
  Country: SI (occurrence: SI)
  Receive Date: 20141209
  Receipt Date: 20141209
  Transmission Date: 20150529
  Serious: Yes (Other)
  Sender: FDA-Public Use
  Company Number: SI-AMGEN-SVNSP2014094456

PATIENT
  Age: 37 Year
  Sex: Male

DRUGS (3)
  1. PLIVIT D3 [Concomitant]
     Active Substance: CHOLECALCIFEROL
     Route: 048
  2. XGEVA [Suspect]
     Active Substance: DENOSUMAB
     Indication: SPINAL CORD NEOPLASM
     Dosage: UNK
     Route: 065
     Dates: start: 201405
  3. CALCIUM [Concomitant]
     Active Substance: CALCIUM
     Dosage: UNK
     Route: 048

REACTIONS (10)
  - Pain [Unknown]
  - Alpha 1 foetoprotein increased [Unknown]
  - Vitamin D decreased [Unknown]
  - Paresis [Unknown]
  - Liver disorder [Unknown]
  - Hypocalcaemia [Not Recovered/Not Resolved]
  - Transaminases decreased [Unknown]
  - Gamma-glutamyltransferase increased [Unknown]
  - Oedema peripheral [Unknown]
  - C-reactive protein increased [Unknown]

NARRATIVE: CASE EVENT DATE: 2014
